FAERS Safety Report 10190073 (Version 1)
Quarter: 2014Q2

REPORT INFORMATION
  Report Type: Spontaneous
  Country: NL (occurrence: NL)
  Receive Date: 20140522
  Receipt Date: 20140522
  Transmission Date: 20141212
  Serious: Yes (Death)
  Sender: FDA-Public Use
  Company Number: NL-AMGEN-NLDSP2014037240

PATIENT
  Age: 77 Year
  Sex: Male

DRUGS (1)
  1. NEULASTA [Suspect]
     Indication: PROPHYLAXIS
     Dosage: 10MG/ML WWSP 0.6ML, EVERY 3 WEEKS
     Route: 058
     Dates: start: 20140410, end: 20140519

REACTIONS (1)
  - Death [Fatal]
